FAERS Safety Report 7537622-5 (Version None)
Quarter: 2011Q2

REPORT INFORMATION
  Report Type: 
  Country: None (occurrence: None)
  Receive Date: 20110609
  Receipt Date: 20070709
  Transmission Date: 20111010
  Serious: Yes (Hospitalization)
  Sender: FDA-Public Use
  Company Number: PHNU2007DE02466

PATIENT
  Sex: Male
  Weight: 86 kg

DRUGS (5)
  1. MOXONIDINE [Concomitant]
     Dosage: 0.6 MG / DAY
  2. DIOVAN [Suspect]
     Dosage: 1 DF, BID
     Route: 048
     Dates: start: 20061207
  3. DIOVAN [Suspect]
     Indication: HYPERTENSION
     Dosage: 1 DF, QD
     Route: 048
     Dates: start: 20061113, end: 20061207
  4. TORSEMIDE [Concomitant]
     Indication: HYPERTENSION
     Dosage: 20 MG / DAY
     Dates: start: 20061113
  5. AMLODIPINE [Concomitant]
     Indication: HYPERTENSION
     Dosage: 10 MG/ DAY

REACTIONS (1)
  - PNEUMONIA [None]
